FAERS Safety Report 4286897-7 (Version None)
Quarter: 2004Q1

REPORT INFORMATION
  Report Type: 
  Country: None (occurrence: None)
  Receive Date: 20040128
  Receipt Date: 20040112
  Transmission Date: 20041129
  Serious: Yes (Hospitalization, Other)
  Sender: FDA-Public Use
  Company Number: 200310432BBE

PATIENT
  Age: 70 Year
  Sex: Male

DRUGS (1)
  1. GAMIMUNE N 10% [Suspect]
     Indication: IMMUNODEFICIENCY COMMON VARIABLE
     Dosage: 600 MG/KG, Q3WK, INTRAVENOUS
     Route: 042

REACTIONS (3)
  - CEREBRAL INFARCTION [None]
  - CEREBROVASCULAR ACCIDENT [None]
  - HEMIANOPIA HOMONYMOUS [None]
